FAERS Safety Report 6582773-5 (Version None)
Quarter: 2010Q1

REPORT INFORMATION
  Report Type: 
  Country: None (occurrence: None)
  Receive Date: 20100212
  Receipt Date: 20100212
  Transmission Date: 20100710
  Serious: Yes (Life-Threatening, Hospitalization)
  Sender: FDA-Public Use
  Company Number: None

PATIENT
  Age: 87 Year
  Sex: Male
  Weight: 79.51 kg

DRUGS (1)
  1. SULFAMETHOXAZOLE AND TRIMETHOPRIM [Suspect]
     Indication: CIRCUMCISION
     Dosage: 800/160 MG BID PO
     Route: 048
     Dates: start: 20090702, end: 20090717

REACTIONS (1)
  - RENAL FAILURE ACUTE [None]
